FAERS Safety Report 9784742 (Version 2)
Quarter: 2016Q3

REPORT INFORMATION
  Report Type: Report from Study
  Country: GB (occurrence: GB)
  Receive Date: 20131227
  Receipt Date: 20160831
  Transmission Date: 20161109
  Serious: Yes (Death, Other)
  Sender: FDA-Public Use
  Company Number: GB-ROCHE-1325032

PATIENT
  Age: 52 Year
  Sex: Male

DRUGS (2)
  1. CAPECITABINE. [Suspect]
     Active Substance: CAPECITABINE
     Indication: PANCREATIC CARCINOMA
     Route: 065
  2. GEMCITABINE HYDROCHLORIDE. [Suspect]
     Active Substance: GEMCITABINE HYDROCHLORIDE
     Indication: PANCREATIC CARCINOMA
     Route: 065

REACTIONS (4)
  - Disease progression [Fatal]
  - Abdominal discomfort [Recovered/Resolved with Sequelae]
  - Malignant ascites [Recovered/Resolved with Sequelae]
  - Biliary sepsis [Recovered/Resolved with Sequelae]

NARRATIVE: CASE EVENT DATE: 20090511
